FAERS Safety Report 6717093-9 (Version None)
Quarter: 2010Q2

REPORT INFORMATION
  Report Type: 
  Country: None (occurrence: None)
  Receive Date: 20100510
  Receipt Date: 20100507
  Transmission Date: 20101027
  Serious: Yes (Hospitalization)
  Sender: FDA-Public Use
  Company Number: IT-BRISTOL-MYERS SQUIBB COMPANY-15008154

PATIENT
  Age: 69 Year
  Sex: Female

DRUGS (5)
  1. COUMADIN [Suspect]
     Indication: ATRIAL FIBRILLATION
     Route: 048
     Dates: start: 20090101, end: 20100210
  2. FLECAINIDE ACETATE [Concomitant]
     Dosage: TABS
     Route: 048
  3. CRESTOR [Concomitant]
     Dosage: CRESTOR 10MG FILM COATED ORAL TABS
     Route: 048
  4. CONGESCOR [Concomitant]
     Dosage: CONGESCOR 2,5 MG ORAL TABS
     Route: 048
  5. VASERETIC [Concomitant]
     Dosage: ENALAPRIL MALEATE 20 MG+ HCTZ 12,5 MG ORAL TABS
     Route: 048

REACTIONS (2)
  - FALL [None]
  - SUBDURAL HAEMATOMA [None]
